FAERS Safety Report 9332510 (Version 2)
Quarter: 2013Q2

REPORT INFORMATION
  Report Type: Report from Study
  Country: AU (occurrence: AU)
  Receive Date: 20130606
  Receipt Date: 20130613
  Transmission Date: 20140414
  Serious: Yes (Hospitalization)
  Sender: FDA-Public Use
  Company Number: AU-ROCHE-1233303

PATIENT
  Sex: Male
  Weight: 98.9 kg

DRUGS (12)
  1. VEMURAFENIB [Suspect]
     Indication: METASTATIC MALIGNANT MELANOMA
     Route: 048
     Dates: start: 20130502
  2. VEMURAFENIB [Suspect]
     Route: 048
     Dates: start: 20130514, end: 20130523
  3. IRBESARTAN [Concomitant]
     Indication: HYPERTENSION
     Route: 048
     Dates: end: 20130523
  4. FRUSEMIDE [Concomitant]
     Indication: CARDIOMEGALY
     Route: 048
     Dates: end: 20130523
  5. ASPIRIN [Concomitant]
     Route: 048
  6. BETALOC [Concomitant]
     Indication: HYPERTENSION
     Route: 048
  7. MINIPRESS [Concomitant]
     Indication: HYPERTENSION
     Route: 048
  8. ALLOPURINOL [Concomitant]
     Route: 065
  9. LINCTUS CODEINE [Concomitant]
     Route: 065
  10. PANADEINE FORTE [Concomitant]
     Route: 065
  11. PRINIVIL [Concomitant]
     Route: 048
  12. ZOCOR [Concomitant]
     Route: 065

REACTIONS (4)
  - Diarrhoea [Recovering/Resolving]
  - Nausea [Recovering/Resolving]
  - Rash [Recovering/Resolving]
  - Renal failure acute [Recovering/Resolving]
